FAERS Safety Report 18872005 (Version 1)
Quarter: 2021Q1

REPORT INFORMATION
  Report Type: Spontaneous
  Country: US (occurrence: US)
  Receive Date: 20210210
  Receipt Date: 20210210
  Transmission Date: 20210420
  Serious: Yes (Other)
  Sender: FDA-Public Use
  Company Number: US-GLAXOSMITHKLINE-US2021GSK034416

PATIENT
  Sex: Male

DRUGS (7)
  1. ZANTAC [Suspect]
     Active Substance: RANITIDINE HYDROCHLORIDE
     Dosage: 150 MG BOTH
     Route: 065
  2. ZANTAC [Suspect]
     Active Substance: RANITIDINE HYDROCHLORIDE
     Dosage: 300 MG, QD
     Route: 065
  3. RANITIDINE. [Suspect]
     Active Substance: RANITIDINE
     Dosage: 300 MG, QD
     Route: 065
  4. RANITIDINE. [Suspect]
     Active Substance: RANITIDINE
     Dosage: 300 MG, QD
     Route: 065
  5. RANITIDINE. [Suspect]
     Active Substance: RANITIDINE
     Dosage: 150 MG BOTH
     Route: 065
  6. ZANTAC [Suspect]
     Active Substance: RANITIDINE HYDROCHLORIDE
     Dosage: 300 MG, QD
     Route: 065
  7. RANITIDINE. [Suspect]
     Active Substance: RANITIDINE
     Dosage: 150 MG BOTH
     Route: 065

REACTIONS (1)
  - Prostate cancer [Unknown]
